FAERS Safety Report 10100523 (Version 2)
Quarter: 2014Q2

REPORT INFORMATION
  Report Type: Spontaneous
  Country: US (occurrence: US)
  Receive Date: 20140423
  Receipt Date: 20140523
  Transmission Date: 20141212
  Serious: Yes (Hospitalization, Other)
  Sender: FDA-Public Use
  Company Number: US-GLAXOSMITHKLINE-A1069790A

PATIENT
  Age: 51 Year
  Sex: Female

DRUGS (13)
  1. SORIATANE [Suspect]
     Indication: PSORIASIS
     Dosage: 17.5MG PER DAY
     Route: 048
     Dates: start: 20130115, end: 20140411
  2. ACITRETIN [Suspect]
     Indication: PSORIASIS
     Route: 065
  3. CALCIUM [Concomitant]
  4. CYCLOBENZAPRINE [Concomitant]
  5. DIAZEPAM [Concomitant]
  6. GLUCOSAMINE [Concomitant]
  7. HCTZ [Concomitant]
  8. METOPROLOL [Concomitant]
  9. MULTIVITAMIN [Concomitant]
  10. VITAMIN E [Concomitant]
  11. ATARAX [Concomitant]
  12. KEPPRA [Concomitant]
  13. ENBREL [Concomitant]

REACTIONS (5)
  - Crohn^s disease [Not Recovered/Not Resolved]
  - Colitis ulcerative [Not Recovered/Not Resolved]
  - Inflammatory bowel disease [Not Recovered/Not Resolved]
  - Gastrointestinal disorder [Not Recovered/Not Resolved]
  - Eczema [Unknown]
